FAERS Safety Report 5411412-1 (Version None)
Quarter: 2007Q3

REPORT INFORMATION
  Report Type: 
  Country: None (occurrence: None)
  Receive Date: 20070810
  Receipt Date: 20070806
  Transmission Date: 20080115
  Serious: Yes (Hospitalization)
  Sender: FDA-Public Use
  Company Number: US-JNJFOC-20070705256

PATIENT
  Sex: Female
  Weight: 67.13 kg

DRUGS (18)
  1. NESIRITIDE [Suspect]
     Dosage: CONTINUOUS INFUSION
     Route: 042
  2. NESIRITIDE [Suspect]
     Indication: PULMONARY HYPERTENSION
     Dosage: BOLUS ADMINISTERED IN 60 SECONDS
     Route: 042
  3. SILDENAFIL CITRATE [Suspect]
     Route: 048
  4. SILDENAFIL CITRATE [Suspect]
     Route: 048
  5. SILDENAFIL CITRATE [Suspect]
     Route: 048
  6. SILDENAFIL CITRATE [Suspect]
     Indication: PULMONARY HYPERTENSION
     Route: 048
  7. FLOLAN [Suspect]
     Dosage: 3 NG/KG/MIN ADMINISTERED AT 11:15
     Route: 042
  8. FLOLAN [Suspect]
     Dosage: 2 NG/KG/MIN ADMINISTERED AT 10:50
     Route: 042
  9. FLOLAN [Suspect]
     Indication: PULMONARY HYPERTENSION
     Dosage: 1 NG/KG/MIN ADMINISTERED AT 10:30
     Route: 042
  10. ALDACTONE [Concomitant]
     Route: 048
  11. NEXIUM [Concomitant]
     Route: 048
  12. NALDOLOL [Concomitant]
     Route: 048
  13. LASIX [Concomitant]
     Route: 048
  14. LASIX [Concomitant]
     Route: 048
  15. LASIX [Concomitant]
     Route: 048
  16. IMURAN [Concomitant]
     Route: 048
  17. SYNTHROID [Concomitant]
     Route: 048
  18. SYNTHROID [Concomitant]
     Indication: HYPOTHYROIDISM
     Route: 048

REACTIONS (1)
  - PLEURAL EFFUSION [None]
